FAERS Safety Report 4429832-0 (Version None)
Quarter: 2004Q3

REPORT INFORMATION
  Report Type: 
  Country: None (occurrence: None)
  Receive Date: 20040817
  Receipt Date: 20040804
  Transmission Date: 20050211
  Serious: Yes (Disabling, Other)
  Sender: FDA-Public Use
  Company Number: 2004053543

PATIENT
  Age: 61 Year
  Sex: Female
  Weight: 81.6475 kg

DRUGS (3)
  1. LIPITOR [Suspect]
     Indication: BLOOD CHOLESTEROL INCREASED
     Dosage: 10 MG (10MG, 1 IN 1 D), ORAL
     Route: 048
     Dates: end: 20040101
  2. VALDECOXIB [Concomitant]
  3. LANSOPRAZOLE [Concomitant]

REACTIONS (3)
  - DIFFICULTY IN WALKING [None]
  - NEUROPATHY [None]
  - PAIN IN EXTREMITY [None]
